FAERS Safety Report 20784175 (Version 2)
Quarter: 2024Q2

REPORT INFORMATION
  Report Type: Spontaneous
  Country: FR (occurrence: FR)
  Receive Date: 20220504
  Receipt Date: 20240531
  Transmission Date: 20240716
  Serious: Yes (Hospitalization)
  Sender: FDA-Public Use
  Company Number: None

PATIENT
  Age: 18 Year
  Sex: Male
  Weight: 52 kg

DRUGS (9)
  1. STIVARGA [Suspect]
     Active Substance: REGORAFENIB\REGORAFENIB MONOHYDRATE
     Indication: Osteosarcoma metastatic
     Dosage: 160 MG, QD 21 DAYS OUT OF 28
     Route: 048
     Dates: start: 20220214, end: 20220306
  2. LEVOTHYROXINE [Concomitant]
     Active Substance: LEVOTHYROXINE\LEVOTHYROXINE SODIUM
     Dosage: 50 ?G, QD
     Dates: start: 20220306
  3. RIVOTRIL [Concomitant]
     Active Substance: CLONAZEPAM
     Indication: Pain in extremity
     Dosage: UNK
     Dates: start: 20220305
  4. DOLIPRANE [Concomitant]
     Active Substance: ACETAMINOPHEN
     Indication: COVID-19
     Dosage: UNK
     Dates: start: 20220220, end: 20220225
  5. DOLIPRANE [Concomitant]
     Active Substance: ACETAMINOPHEN
     Indication: COVID-19
     Dosage: UNK
     Dates: start: 20220308
  6. DESLORATADINE [Concomitant]
     Active Substance: DESLORATADINE
     Dosage: UNK
     Dates: start: 20220304, end: 20220310
  7. BACTRIM [Concomitant]
     Active Substance: SULFAMETHOXAZOLE\TRIMETHOPRIM
     Indication: Prophylaxis
     Dosage: UNK
  8. EBASTINE [Concomitant]
     Active Substance: EBASTINE
     Indication: Rash pruritic
     Dosage: UNK
     Dates: start: 202203
  9. CABOZANTINIB [Concomitant]
     Active Substance: CABOZANTINIB
     Dosage: 40 MG, QD

REACTIONS (3)
  - Palmar-plantar erythrodysaesthesia syndrome [Recovering/Resolving]
  - Hypothyroidism [Not Recovered/Not Resolved]
  - Drug reaction with eosinophilia and systemic symptoms [Recovering/Resolving]

NARRATIVE: CASE EVENT DATE: 20220301
